FAERS Safety Report 8835380 (Version 2)
Quarter: 2012Q4

REPORT INFORMATION
  Report Type: Report from Study
  Country: US (occurrence: US)
  Receive Date: 20121011
  Receipt Date: 20121109
  Transmission Date: 20130627
  Serious: Yes (Hospitalization)
  Sender: FDA-Public Use
  Company Number: US-JNJFOC-20121005833

PATIENT
  Age: 64 Year
  Sex: Female

DRUGS (4)
  1. REMICADE [Suspect]
     Indication: PRODUCT USED FOR UNKNOWN INDICATION
     Route: 042
     Dates: start: 20120713
  2. TOPROL XL [Concomitant]
     Indication: CARDIAC DISORDER
  3. CRESTOR [Concomitant]
     Indication: BLOOD CHOLESTEROL
  4. ZETIA [Concomitant]
     Indication: BLOOD CHOLESTEROL

REACTIONS (1)
  - Serum sickness [Recovered/Resolved]
